FAERS Safety Report 6642302-4 (Version None)
Quarter: 2010Q1

REPORT INFORMATION
  Report Type: 
  Country: None (occurrence: None)
  Receive Date: 20100316
  Receipt Date: 20100301
  Transmission Date: 20100710
  Serious: Yes (Hospitalization, Other)
  Sender: FDA-Public Use
  Company Number: 20100103

PATIENT
  Age: 47 Year
  Sex: Female

DRUGS (5)
  1. DEHYDRATED ALCOHOL INJECTION, USP (8571-10) [Suspect]
     Indication: SCLEROTHERAPY
     Dosage: 400 ML INJECTION NOS
  2. DEHYDRATED ALCOHOL INJECTION, USP (8571-10) [Suspect]
     Indication: SPLENIC CYST
     Dosage: 400 ML INJECTION NOS
  3. LIDOCAINE [Concomitant]
  4. FENTANYL [Concomitant]
  5. MIDAZOLAM HCL [Concomitant]

REACTIONS (9)
  - ALCOHOL POISONING [None]
  - CIRCULATORY COLLAPSE [None]
  - HYPOTENSION [None]
  - IATROGENIC INJURY [None]
  - LOSS OF CONSCIOUSNESS [None]
  - NERVE INJURY [None]
  - PARAESTHESIA [None]
  - PLEURAL EFFUSION [None]
  - UNRESPONSIVE TO STIMULI [None]
